FAERS Safety Report 7225605-4 (Version None)
Quarter: 2011Q1

REPORT INFORMATION
  Report Type: 
  Country: None (occurrence: None)
  Receive Date: 20110107
  Receipt Date: 20110107
  Transmission Date: 20110831
  Serious: No
  Sender: FDA-Public Use
  Company Number: None

PATIENT
  Age: 63 Year
  Sex: Female
  Weight: 89.3586 kg

DRUGS (1)
  1. DICLOFENAC SOD EC 75 MG TAB [Suspect]
     Dosage: 2 A DAY

REACTIONS (3)
  - HEART RATE INCREASED [None]
  - DIZZINESS [None]
  - SYNCOPE [None]
